FAERS Safety Report 8085588-4 (Version None)
Quarter: 2012Q1

REPORT INFORMATION
  Report Type: 
  Country: None (occurrence: None)
  Receive Date: 20120128
  Receipt Date: 20110401
  Transmission Date: 20120608
  Serious: No
  Sender: FDA-Public Use
  Company Number: US-ABBOTT-11P-163-0715884-00

PATIENT
  Age: 64 Year
  Sex: Male

DRUGS (8)
  1. LOVAZA [Concomitant]
     Indication: BLOOD TRIGLYCERIDES INCREASED
  2. BISOPROLOL [Concomitant]
     Indication: HYPERTENSION
  3. COLESTIPOL HYDROCHLORIDE [Concomitant]
     Indication: PRODUCT USED FOR UNKNOWN INDICATION
  4. HUMIRA [Suspect]
     Indication: COLITIS ULCERATIVE
     Dates: start: 20100401
  5. LIALDA [Concomitant]
     Indication: IRRITABLE BOWEL SYNDROME
  6. LOSARTAN POTASSIUM [Concomitant]
     Indication: HYPERTENSION
  7. OMEPRAZOLE [Concomitant]
     Indication: GASTROOESOPHAGEAL REFLUX DISEASE
  8. LOVAZA [Concomitant]
     Indication: BLOOD TRIGLYCERIDES INCREASED

REACTIONS (1)
  - SINUSITIS [None]
